FAERS Safety Report 9432411 (Version 1)
Quarter: 2013Q3

REPORT INFORMATION
  Report Type: Spontaneous
  Country: US (occurrence: None)
  Receive Date: 20130730
  Receipt Date: 20130730
  Transmission Date: 20140515
  Serious: Yes (Hospitalization, Disabling, Other)
  Sender: FDA-Public Use
  Company Number: None

PATIENT
  Age: 27 Year
  Sex: Male
  Weight: 65.77 kg

DRUGS (7)
  1. PRILOSEC [Suspect]
     Indication: GASTROOESOPHAGEAL REFLUX DISEASE
     Route: 048
     Dates: start: 20110601
  2. CARAGATE 1G [Concomitant]
  3. ZANTAC 150MG [Concomitant]
  4. ATIVAN .5MG [Concomitant]
  5. FLONASE [Concomitant]
  6. MAGNESIUM 250MG [Concomitant]
  7. MULTIVITAMIN [Concomitant]

REACTIONS (2)
  - Presyncope [None]
  - Supraventricular tachycardia [None]
